FAERS Safety Report 18691034 (Version 1)
Quarter: 2021Q1

REPORT INFORMATION
  Report Type: Spontaneous
  Country: DE (occurrence: DE)
  Receive Date: 20210101
  Receipt Date: 20210101
  Transmission Date: 20210419
  Serious: Yes (Hospitalization, Other)
  Sender: FDA-Public Use
  Company Number: NVSC2020DE342610

PATIENT
  Sex: Female

DRUGS (2)
  1. PIQRAY [Suspect]
     Active Substance: ALPELISIB
     Indication: BREAST CANCER
     Dosage: UNK
     Route: 065
     Dates: start: 202012, end: 202012
  2. FULVESTRANT. [Suspect]
     Active Substance: FULVESTRANT
     Indication: PRODUCT USED FOR UNKNOWN INDICATION
     Dosage: UNK
     Route: 065
     Dates: start: 202012, end: 202012

REACTIONS (9)
  - Nephrotic syndrome [Unknown]
  - Glucose tolerance impaired [Unknown]
  - Urticaria [Unknown]
  - Rash [Unknown]
  - Blood creatinine increased [Unknown]
  - Blood glucose increased [Unknown]
  - Asthenia [Unknown]
  - Acute kidney injury [Unknown]
  - Skin reaction [Unknown]
